FAERS Safety Report 5156102-8 (Version None)
Quarter: 2006Q4

REPORT INFORMATION
  Report Type: 
  Country: None (occurrence: None)
  Receive Date: 20061114
  Receipt Date: 20061027
  Transmission Date: 20070319
  Serious: Yes (Other)
  Sender: FDA-Public Use
  Company Number: 2006S1008366

PATIENT
  Age: 68 Year
  Sex: Female
  Weight: 72.5755 kg

DRUGS (12)
  1. FENTANYL TRANSDERMAL SYSTEM [Suspect]
     Indication: ABDOMINAL NEOPLASM
     Dosage: 100 UG/HR; Q3D/TDER
     Route: 062
     Dates: start: 20050801
  2. FENTANYL TRANSDERMAL SYSTEM [Suspect]
     Indication: ARTHRITIS
     Dosage: 100 UG/HR; Q3D/TDER
     Route: 062
     Dates: start: 20050801
  3. FENTANYL TRANSDERMAL SYSTEM [Suspect]
     Indication: BACK PAIN
     Dosage: 100 UG/HR; Q3D/TDER
     Route: 062
     Dates: start: 20050801
  4. FENTANYL TRANSDERMAL SYSTEM [Suspect]
     Indication: FIBROMYALGIA
     Dosage: 100 UG/HR; Q3D/TDER
     Route: 062
     Dates: start: 20050801
  5. PROMETHAZINE [Concomitant]
  6. PLETAL [Concomitant]
  7. CLONAZEPAM [Concomitant]
  8. LANTUS [Concomitant]
  9. NITROGLYCERIN [Concomitant]
  10. TOPROL-XL [Concomitant]
  11. LIPITOR [Concomitant]
  12. PLAVIX [Concomitant]

REACTIONS (6)
  - BACK PAIN [None]
  - DRUG EFFECT DECREASED [None]
  - NAUSEA [None]
  - PAIN IN JAW [None]
  - PHARMACEUTICAL PRODUCT COMPLAINT [None]
  - VOMITING [None]
